FAERS Safety Report 19785432 (Version 1)
Quarter: 2021Q3

REPORT INFORMATION
  Report Type: Spontaneous
  Country: US (occurrence: US)
  Receive Date: 20210903
  Receipt Date: 20210903
  Transmission Date: 20211014
  Serious: Yes (Other)
  Sender: FDA-Public Use
  Company Number: US-BAYER-2021-201784

PATIENT
  Sex: Female

DRUGS (1)
  1. GIANVI [Suspect]
     Active Substance: DROSPIRENONE\ETHINYL ESTRADIOL
     Route: 048

REACTIONS (1)
  - Coeliac disease [None]
